FAERS Safety Report 5624801-7 (Version None)
Quarter: 2008Q1

REPORT INFORMATION
  Report Type: 
  Country: None (occurrence: None)
  Receive Date: 20080213
  Receipt Date: 20080204
  Transmission Date: 20080703
  Serious: Yes (Life-Threatening)
  Sender: FDA-Public Use
  Company Number: DE-ROCHE-545347

PATIENT
  Age: 36 Year
  Sex: Female

DRUGS (54)
  1. TORSEMIDE [Suspect]
     Indication: OEDEMA
     Dosage: DOSING REGIMEN REPORTED AS: 1X5 MG, 2X5 MG, 3X5MG, 3X10 MG,2X10 MG.
     Route: 042
     Dates: start: 20050224, end: 20050317
  2. MIDAZOLAM HCL [Suspect]
     Indication: SEDATION
     Dosage: DOSAGE REGIME 1X90MG
     Route: 042
     Dates: start: 20050222, end: 20050310
  3. HAES [Suspect]
     Dosage: DOSAGE REGIME 1X125ML
     Route: 042
     Dates: start: 20050222, end: 20050308
  4. HAES [Suspect]
     Dosage: DOSAGE REGIME 4X125ML
     Route: 042
  5. FENTANYL [Suspect]
     Indication: SEDATION
     Dosage: DOSAGE REGIME 1X1
     Route: 042
     Dates: start: 20050222, end: 20050310
  6. MANNITOL [Suspect]
     Indication: PROPHYLAXIS
     Dosage: DOSAGE REGIME 2X125ML
     Route: 042
     Dates: start: 20050222, end: 20050311
  7. MANNITOL [Suspect]
     Dosage: DOSAGE REGIME 4X125ML
     Route: 042
     Dates: start: 20050222, end: 20050311
  8. ACETYLCYSTEINE [Suspect]
     Indication: PROPHYLAXIS
     Dosage: DOSAGE REGIME 3X300MG
     Route: 042
     Dates: start: 20050222, end: 20050317
  9. ACETYLCYSTEINE [Suspect]
     Dosage: DOSAGE REGIME 2X300MG
     Route: 042
  10. AMBROXOL [Suspect]
     Indication: PROPHYLAXIS
     Dosage: DOSE 2X30MG
     Route: 042
     Dates: start: 20050222, end: 20050317
  11. PANTOPRAZOLE SODIUM [Suspect]
     Indication: PROPHYLAXIS
     Dosage: DOSE 1X1
     Route: 042
     Dates: start: 20050222, end: 20050317
  12. PROPOFOL [Suspect]
     Indication: SEDATION
     Dosage: DOSING REGIMEN REPORTED AS: 1X
     Route: 042
     Dates: start: 20050223, end: 20050310
  13. EMBOLEX [Suspect]
     Indication: THROMBOSIS PROPHYLAXIS
     Dosage: DOSING REGIMEN REPORTED AS: 1X.
     Route: 058
     Dates: start: 20050223, end: 20050317
  14. TRAPANAL [Suspect]
     Indication: ANAESTHESIA
     Dosage: DOSING REGIMEN REPORTED AS 1,5 G.
     Route: 042
     Dates: start: 20050226, end: 20050304
  15. NORADRENALINE [Suspect]
     Indication: HYPOVOLAEMIA
     Dosage: DOSING REGIMEN REPORTED AS: 1X5MG.
     Route: 042
     Dates: start: 20050228, end: 20050310
  16. NORADRENALINE [Suspect]
     Dosage: DOSING REGIMEN REPORTED AS: 1X5MG.
     Route: 042
     Dates: start: 20050226, end: 20050226
  17. NOVAMINSULFON [Suspect]
     Indication: PAIN
     Dosage: DOSING REGIMEN REPORTED AS: 1X1G, 1X2.5G, 1X2.5G.
     Route: 042
     Dates: start: 20050302, end: 20050303
  18. NOVAMINSULFON [Suspect]
     Dosage: DOSING REGIMEN REPORTED AS: 1X1G, 1X2.5G, 1X2.5G.
     Route: 042
     Dates: start: 20050228, end: 20050228
  19. NOVAMINSULFON [Suspect]
     Dosage: DOSING REGIMEN REPORTED AS: 1X1G, 1X2.5G, 1X2.5G.
     Route: 042
     Dates: start: 20050305, end: 20050305
  20. TAZOBACTAM [Suspect]
     Indication: INFECTION
     Dosage: DOSING REGIMEN REPORTED AS: 3X4.5 G.
     Route: 042
     Dates: start: 20050228, end: 20050306
  21. JONOSTERIL [Suspect]
     Dosage: DOSING REGIMEN REPORTED AS: 1X1000ML.
     Route: 042
     Dates: start: 20050228, end: 20050313
  22. LAXOBERAL [Suspect]
     Dosage: DOSING REGIMEN REPORTED AS: 20 TR.
     Route: 048
     Dates: start: 20050303, end: 20050308
  23. MOVICOL [Suspect]
     Dosage: DOSING REGIMEN REPORTED AS: BRS TBL 3X1, 1X1.
     Route: 048
     Dates: start: 20050303, end: 20050317
  24. MEPERIDINE HCL [Suspect]
     Indication: PAIN
     Dosage: DOSING REGIMEN REPORTED AS: 1X25 MG.
     Route: 042
     Dates: start: 20050304, end: 20050304
  25. NOVAMINSULFON [Suspect]
     Dosage: DOSING REGIMEN REPORTED AS: 1X5G.
     Route: 048
     Dates: start: 20050304, end: 20050304
  26. VOLUVEN [Suspect]
     Dosage: DOSING REGIMEN REPORTED AS: 1X500 ML.
     Route: 042
     Dates: start: 20050304, end: 20050304
  27. VOLUVEN [Suspect]
     Dosage: DOSING REGIMEN REPORTED AS: 1X500 ML.
     Route: 042
     Dates: start: 20050306, end: 20050306
  28. GLUCOSE [Suspect]
     Indication: PARENTERAL NUTRITION
     Dosage: DOSING REGIMEN REPORTED AS: 1X500 ML.
     Route: 042
     Dates: start: 20050304, end: 20050307
  29. GENTAMICIN [Suspect]
     Indication: INFECTION PROPHYLAXIS
     Dosage: DOSE 1X400 MG
     Route: 042
     Dates: start: 20050304, end: 20050306
  30. GENTAMICIN [Suspect]
     Dosage: DOSE 1X400 MG
     Route: 042
     Dates: start: 20050313, end: 20050315
  31. FENISTIL [Suspect]
     Dosage: DOSE 1X4MG, 2X4MG
     Route: 042
     Dates: start: 20050304, end: 20050312
  32. FENISTIL [Suspect]
     Dosage: DOSE 1X4MG, 2X4MG
     Route: 042
     Dates: start: 20050313, end: 20050315
  33. PREDNISOLONE [Suspect]
     Dosage: DOSE 3X100MG, 1X50 MG, 1X100MG
     Route: 042
     Dates: start: 20050304, end: 20050304
  34. PREDNISOLONE [Suspect]
     Dosage: DOSE 3X100MG, 1X50 MG, 1X100MG
     Route: 042
     Dates: start: 20050317, end: 20050317
  35. INTRAFUSIN [Suspect]
     Dosage: DOSE 1X500ML
     Route: 042
     Dates: start: 20050305, end: 20050307
  36. HYDROCORTISONE [Suspect]
     Dosage: DOSE 100 MG, 300MG
     Route: 042
     Dates: start: 20050305, end: 20050310
  37. SODIUM CHLORIDE [Suspect]
     Dosage: RECEIVED ON 9 MARCH 2005 DOSE 1X500ML
     Route: 042
  38. CLONIDINE [Suspect]
     Indication: HYPERTENSION
     Dosage: RECEIVED ON 10 MARCH 2005. DOSE 1X1/4 AMP
     Route: 042
  39. LIPOVENOES [Suspect]
     Indication: PARENTERAL NUTRITION
     Dosage: RECEIVED ON 10 MARCH 2005, DOSE 1X500ML
     Route: 042
     Dates: start: 20050310, end: 20050310
  40. BELOC-ZOK [Suspect]
     Indication: HYPERTENSION
     Dosage: DOSE 3X5 MG
     Route: 042
     Dates: start: 20050310, end: 20050311
  41. TRACUTIL [Suspect]
     Indication: MINERAL SUPPLEMENTATION
     Dosage: DOSE 1X1 AMPULE
     Route: 042
     Dates: start: 20050310, end: 20050313
  42. PERFALGAN [Suspect]
     Indication: PAIN
     Dosage: DOSE 1X1 G, 3X1 G
     Route: 042
     Dates: start: 20050310, end: 20050312
  43. PERFALGAN [Suspect]
     Route: 042
     Dates: start: 20050316, end: 20050316
  44. PARACEFAN [Suspect]
     Indication: HYPERTENSION
     Dosage: DOSE 1X1.5MG
     Route: 042
     Dates: start: 20050311, end: 20050314
  45. ESPUMISAN [Suspect]
     Dosage: DOSE 1X20ML
     Route: 048
     Dates: start: 20050312, end: 20050314
  46. ZIENAM [Suspect]
     Dosage: DOSE 3X1GRAM
     Route: 042
     Dates: start: 20050313, end: 20050316
  47. METOPROLOL SUCCINATE [Suspect]
     Indication: HYPERTENSION
     Dosage: DOSE 2X1
     Route: 048
     Dates: start: 20050313, end: 20050317
  48. RANITIDINE HCL [Suspect]
     Dosage: DOSE 2X1 AMP, 1X1 AMP
     Route: 042
     Dates: start: 20050315, end: 20050317
  49. RINGER'S INJECTION [Concomitant]
     Dosage: DOSE 2X1000ML, 1000ML
     Route: 042
     Dates: start: 20050222, end: 20050227
  50. CEFUROXIME [Concomitant]
     Indication: INFECTION
     Dosage: RECEIVED ON 25 FEB 2005 DOSE 3X1, 5 GRAM
     Route: 042
     Dates: start: 20050225, end: 20050225
  51. 1 CONCOMITANT DRUG [Concomitant]
     Dosage: DRUG HYPERHAES DOSE 3X50 ML
     Route: 042
     Dates: start: 20050225, end: 20050226
  52. SUFENTANIL CITRATE [Concomitant]
     Indication: ANAESTHESIA
     Dosage: DOSE 1X1 MG
     Route: 042
     Dates: start: 20050316, end: 20050317
  53. URBASON [Concomitant]
     Dosage: DOSE 1X5 MG, 1X1GRAM
     Route: 042
     Dates: start: 20050317, end: 20050317
  54. PROPOFOL [Concomitant]
     Indication: ANAESTHESIA
     Dosage: DOSE 1X1 GRAM
     Route: 042
     Dates: start: 20050317, end: 20050317

REACTIONS (1)
  - TOXIC EPIDERMAL NECROLYSIS [None]
